FAERS Safety Report 9022087 (Version 1)
Quarter: 2013Q1

REPORT INFORMATION
  Report Type: Spontaneous
  Country: FR (occurrence: FR)
  Receive Date: 20130118
  Receipt Date: 20130118
  Transmission Date: 20140127
  Serious: Yes (Hospitalization)
  Sender: FDA-Public Use
  Company Number: FR-GLAXOSMITHKLINE-B0856808A

PATIENT
  Sex: Male

DRUGS (4)
  1. SERETIDE [Suspect]
     Indication: BRONCHOSPASM
     Dosage: 250MCG UNKNOWN
     Route: 055
     Dates: start: 20120113
  2. FINGOLIMOD [Suspect]
     Indication: MULTIPLE SCLEROSIS
     Dosage: .5MG PER DAY
     Route: 048
     Dates: start: 20111220
  3. LYRICA [Suspect]
     Dosage: 300MG TWICE PER DAY
     Route: 048
  4. SIFROL [Suspect]
     Route: 048

REACTIONS (4)
  - Testicular necrosis [Recovered/Resolved]
  - Testicular pain [Unknown]
  - Nodule [Unknown]
  - Necrosis ischaemic [Unknown]
